FAERS Safety Report 14101092 (Version 1)
Quarter: 2017Q4

REPORT INFORMATION
  Report Type: Spontaneous
  Country: US (occurrence: None)
  Receive Date: 20171017
  Receipt Date: 20171017
  Transmission Date: 20180321
  Serious: Yes (Hospitalization)
  Sender: FDA-Public Use
  Company Number: None

PATIENT
  Age: 62 Year
  Sex: Male
  Weight: 98 kg

DRUGS (12)
  1. PREDNISONE. [Concomitant]
     Active Substance: PREDNISONE
  2. POTASSIUM CHLORIDE CR [Concomitant]
     Active Substance: POTASSIUM CHLORIDE
  3. NIVOLUMAB 3MG/KG [Suspect]
     Active Substance: NIVOLUMAB
     Indication: MALIGNANT MELANOMA
     Route: 042
     Dates: start: 20160818, end: 20170105
  4. LOMOTIL [Concomitant]
     Active Substance: ATROPINE SULFATE\DIPHENOXYLATE HYDROCHLORIDE
  5. IPLILMUNAB 1MG/KG [Suspect]
     Active Substance: IPILIMUMAB
     Indication: ADJUVANT THERAPY
     Dosage: FREQUENCY - Q 6 WEEKS
     Route: 042
     Dates: start: 20160818, end: 20161222
  6. IPLILMUNAB 1MG/KG [Suspect]
     Active Substance: IPILIMUMAB
     Indication: MALIGNANT MELANOMA
     Dosage: FREQUENCY - Q 6 WEEKS
     Route: 042
     Dates: start: 20160818, end: 20161222
  7. CALCIUM GLUCONATE. [Concomitant]
     Active Substance: CALCIUM GLUCONATE
  8. SULFAMETHAZOLE-TRIMETHOPRIM [Concomitant]
  9. SODIUM CHLORIDE WITH KCL [Concomitant]
  10. CALCIUM GLUCONATE IN SODIUM CHLORIDE [Concomitant]
  11. LOPERAMIDE [Concomitant]
     Active Substance: LOPERAMIDE
  12. NIVOLUMAB 3MG/KG [Suspect]
     Active Substance: NIVOLUMAB
     Indication: ADJUVANT THERAPY
     Route: 042
     Dates: start: 20160818, end: 20170105

REACTIONS (4)
  - Dehydration [None]
  - Autoimmune disorder [None]
  - Diarrhoea [None]
  - Colitis [None]

NARRATIVE: CASE EVENT DATE: 20170110
